FAERS Safety Report 7412235-4 (Version None)
Quarter: 2011Q2

REPORT INFORMATION
  Report Type: 
  Country: None (occurrence: None)
  Receive Date: 20110405
  Receipt Date: 20110323
  Transmission Date: 20111010
  Serious: Yes (Other)
  Sender: FDA-Public Use
  Company Number: 201110311

PATIENT
  Sex: Male

DRUGS (2)
  1. LIORESAL [Suspect]
     Indication: MUSCLE SPASTICITY
     Dosage: INTRATHECAL
     Route: 037
  2. BACLOFEN [Concomitant]

REACTIONS (16)
  - PAIN [None]
  - RASH [None]
  - SKIN DISCOLOURATION [None]
  - IMPLANT SITE CELLULITIS [None]
  - CONDITION AGGRAVATED [None]
  - DEVICE CONNECTION ISSUE [None]
  - HYPERHIDROSIS [None]
  - MUSCLE SPASTICITY [None]
  - PRURITUS [None]
  - ERYTHEMA [None]
  - INFECTION [None]
  - IMPLANT SITE EFFUSION [None]
  - DRUG WITHDRAWAL SYNDROME [None]
  - OEDEMA [None]
  - ABDOMINAL PAIN [None]
  - IMPLANT SITE ABSCESS [None]
